FAERS Safety Report 12233725 (Version 1)
Quarter: 2016Q2

REPORT INFORMATION
  Report Type: Spontaneous
  Country: US (occurrence: US)
  Receive Date: 20160404
  Receipt Date: 20160404
  Transmission Date: 20160815
  Serious: Yes (Life-Threatening, Hospitalization, Other)
  Sender: FDA-Public Use
  Company Number: US-BAYER-2016-057898

PATIENT
  Sex: Male
  Weight: 78.47 kg

DRUGS (2)
  1. CIPRO [Suspect]
     Active Substance: CIPROFLOXACIN HYDROCHLORIDE
     Indication: DIVERTICULITIS
  2. FLAGYL [Suspect]
     Active Substance: METRONIDAZOLE\METRONIDAZOLE HYDROCHLORIDE
     Indication: DIVERTICULITIS
     Dosage: UNK

REACTIONS (8)
  - Apparent death [None]
  - Organ failure [None]
  - White blood cell count increased [None]
  - Platelet count increased [None]
  - Asthenia [None]
  - Dehydration [None]
  - Malaise [None]
  - Diarrhoea [None]
